FAERS Safety Report 6988334-8 (Version None)
Quarter: 2010Q3

REPORT INFORMATION
  Report Type: 
  Country: None (occurrence: None)
  Receive Date: 20100916
  Receipt Date: 20100913
  Transmission Date: 20110219
  Serious: Yes (Hospitalization)
  Sender: FDA-Public Use
  Company Number: US-BAYER-201019931BCC

PATIENT
  Age: 55 Year
  Sex: Male
  Weight: 99 kg

DRUGS (12)
  1. ASPIRIN [Suspect]
     Indication: PRODUCT USED FOR UNKNOWN INDICATION
     Dosage: TOTAL DAILY DOSE: 81 MG  UNIT DOSE: 81 MG
     Route: 065
  2. PLAVIX [Suspect]
     Indication: PRODUCT USED FOR UNKNOWN INDICATION
     Dosage: TOTAL DAILY DOSE: 75 MG  UNIT DOSE: 75 MG
     Route: 065
  3. SUNITINIB OR PLACEBO [Suspect]
     Indication: RENAL CELL CARCINOMA
     Route: 048
     Dates: start: 20090708
  4. SUNITINIB OR PLACEBO [Suspect]
     Route: 048
  5. SORAFENIB OR PLACEBO [Suspect]
     Indication: RENAL CELL CARCINOMA
     Route: 048
     Dates: start: 20090708
  6. SORAFENIB OR PLACEBO [Suspect]
     Route: 048
  7. HYDROCHLOROTHIAZIDE [Suspect]
     Indication: PRODUCT USED FOR UNKNOWN INDICATION
     Dosage: TOTAL DAILY DOSE: 25 MG  UNIT DOSE: 25 MG
     Route: 065
  8. LISINOPRIL [Suspect]
     Indication: HYPERTENSION
     Dosage: UNIT DOSE: 10 MG
     Route: 065
  9. LISINOPRIL [Suspect]
     Dosage: TOTAL DAILY DOSE: 10 MG  UNIT DOSE: 10 MG
  10. TOPROL-XL [Suspect]
     Indication: PRODUCT USED FOR UNKNOWN INDICATION
     Dosage: TOTAL DAILY DOSE: 225 MG  UNIT DOSE: 225 MG
     Route: 065
  11. TRAZODONE HCL [Concomitant]
     Dosage: TOTAL DAILY DOSE: 100 MG  UNIT DOSE: 100 MG
     Route: 065
  12. INTRAVENOUS FLUIDS [Concomitant]
     Route: 042

REACTIONS (7)
  - EPISTAXIS [None]
  - FAECAL INCONTINENCE [None]
  - HYPERTENSION [None]
  - LOSS OF CONSCIOUSNESS [None]
  - SYNCOPE [None]
  - UNRESPONSIVE TO STIMULI [None]
  - URINARY INCONTINENCE [None]
